FAERS Safety Report 15963301 (Version 1)
Quarter: 2019Q1

REPORT INFORMATION
  Report Type: Spontaneous
  Country: US (occurrence: US)
  Receive Date: 20190214
  Receipt Date: 20190214
  Transmission Date: 20190417
  Serious: Yes (Hospitalization, Other)
  Sender: FDA-Public Use
  Company Number: US-GLAXOSMITHKLINE-US2019GSK025669

PATIENT
  Sex: Male

DRUGS (2)
  1. KLONOPIN [Suspect]
     Active Substance: CLONAZEPAM
     Indication: ANXIETY
  2. LAMICTAL XR [Suspect]
     Active Substance: LAMOTRIGINE

REACTIONS (1)
  - Seizure [Unknown]
